FAERS Safety Report 11143305 (Version 1)
Quarter: 2015Q2

REPORT INFORMATION
  Report Type: Spontaneous
  Country: JP (occurrence: JP)
  Receive Date: 20150528
  Receipt Date: 20150528
  Transmission Date: 20150821
  Serious: Yes (Hospitalization)
  Sender: FDA-Public Use
  Company Number: JP-009507513-1505JPN004105

PATIENT
  Age: 35 Year
  Sex: Female

DRUGS (4)
  1. TIENAM FOR INTRAVENOUS DRIP INFUSION [Suspect]
     Active Substance: CILASTATIN SODIUM\IMIPENEM
     Indication: SEPSIS
     Dosage: TOTAL DAILY DOSE 2G,DIVIDED DOSE FREQUENCY UNKNOWN
     Route: 051
     Dates: start: 20150427, end: 20150429
  2. DALACIN P [Suspect]
     Active Substance: CLINDAMYCIN PHOSPHATE
     Indication: SEPSIS
     Dosage: DAILY DOSAGE UNKNOWN
     Route: 065
     Dates: start: 20150427, end: 20150504
  3. VANCOMYCIN [Suspect]
     Active Substance: VANCOMYCIN
     Indication: SEPSIS
     Dosage: DAILY DOSAGE UNKNOWN
     Route: 065
     Dates: start: 20150430, end: 20150504
  4. TIENAM FOR INTRAVENOUS DRIP INFUSION [Suspect]
     Active Substance: CILASTATIN SODIUM\IMIPENEM
     Dosage: TOTAL DAILY DOSE 1.5G, DIVIDED DOSE FREQUENCY UNKNOWN
     Route: 051
     Dates: start: 20150430, end: 20150504

REACTIONS (1)
  - Drug eruption [Recovered/Resolved]

NARRATIVE: CASE EVENT DATE: 20150507
